FAERS Safety Report 6523574-3 (Version None)
Quarter: 2009Q4

REPORT INFORMATION
  Report Type: 
  Country: None (occurrence: None)
  Receive Date: 20091231
  Receipt Date: 20091222
  Transmission Date: 20100525
  Serious: Yes (Disabling)
  Sender: FDA-Public Use
  Company Number: PHHY2009IT57752

PATIENT
  Sex: Female

DRUGS (7)
  1. ZOMETA [Suspect]
     Indication: METASTASES TO BONE
     Dosage: 4 MG, QMO
  2. AROMASIN [Concomitant]
  3. XELODA [Concomitant]
  4. FASLODEX [Concomitant]
     Route: 030
  5. EUTIROX [Concomitant]
  6. CLIVARIN [Concomitant]
  7. COUMADIN [Concomitant]

REACTIONS (1)
  - OSTEONECROSIS [None]
